FAERS Safety Report 22067210 (Version 2)
Quarter: 2023Q2

REPORT INFORMATION
  Report Type: Spontaneous
  Country: US (occurrence: None)
  Receive Date: 20230307
  Receipt Date: 20230606
  Transmission Date: 20230722
  Serious: No
  Sender: FDA-Public Use
  Company Number: US-ROCHE-3264207

PATIENT
  Age: 66 Year
  Sex: Male

DRUGS (4)
  1. ENSPRYNG [Suspect]
     Active Substance: SATRALIZUMAB-MWGE
     Indication: Product used for unknown indication
     Dosage: STRENGTH: 120MG/ML
     Route: 058
     Dates: start: 202105
  2. ENSPRYNG [Suspect]
     Active Substance: SATRALIZUMAB-MWGE
  3. ENSPRYNG [Suspect]
     Active Substance: SATRALIZUMAB-MWGE
  4. ENSPRYNG [Suspect]
     Active Substance: SATRALIZUMAB-MWGE

REACTIONS (1)
  - Upper respiratory tract infection [Unknown]

NARRATIVE: CASE EVENT DATE: 20221230
